FAERS Safety Report 7512546-8 (Version None)
Quarter: 2011Q2

REPORT INFORMATION
  Report Type: 
  Country: None (occurrence: None)
  Receive Date: 20110531
  Receipt Date: 20110520
  Transmission Date: 20111010
  Serious: No
  Sender: FDA-Public Use
  Company Number: NL-ROCHE-778647

PATIENT
  Sex: Female
  Weight: 2.7 kg

DRUGS (1)
  1. ACCUTANE [Suspect]
     Route: 064
     Dates: end: 20090925

REACTIONS (2)
  - ATOPY [None]
  - DELIVERY [None]
